FAERS Safety Report 20083084 (Version 2)
Quarter: 2021Q4

REPORT INFORMATION
  Report Type: Report from Study
  Country: BE (occurrence: BE)
  Receive Date: 20211117
  Receipt Date: 20211126
  Transmission Date: 20220303
  Serious: Yes (Hospitalization)
  Sender: FDA-Public Use
  Company Number: BE-BEH-2021138154

PATIENT
  Age: 6 Year
  Sex: Male
  Weight: 25 kg

DRUGS (4)
  1. HIZENTRA [Suspect]
     Active Substance: HUMAN IMMUNOGLOBULIN G
     Indication: Hypogammaglobulinaemia
     Dosage: 3 GRAM, QW
     Route: 058
     Dates: start: 20200616
  2. HIZENTRA [Suspect]
     Active Substance: HUMAN IMMUNOGLOBULIN G
     Dosage: 3 GRAM, TOT
     Route: 058
     Dates: start: 20211104, end: 20211104
  3. PERDOLAN [ACETYLSALICYLIC ACID;BROMISOVAL;CAFFEINE;CARBROMAL;CODEINE P [Concomitant]
  4. NIFUROXAZIDE [Concomitant]
     Active Substance: NIFUROXAZIDE

REACTIONS (4)
  - Diarrhoea [Recovering/Resolving]
  - Malaise [Not Recovered/Not Resolved]
  - Weight decreased [Not Recovered/Not Resolved]
  - Headache [Recovered/Resolved]

NARRATIVE: CASE EVENT DATE: 20211107
